FAERS Safety Report 5193418-3 (Version None)
Quarter: 2006Q4

REPORT INFORMATION
  Report Type: 
  Country: None (occurrence: None)
  Receive Date: 20061228
  Receipt Date: 20060418
  Transmission Date: 20070319
  Serious: No
  Sender: FDA-Public Use
  Company Number: US-GLAXOSMITHKLINE-A0602153A

PATIENT
  Age: 80 Year
  Sex: Female

DRUGS (8)
  1. FLONASE [Suspect]
     Dosage: 2SPR TWICE PER DAY
     Route: 045
  2. ALLEGRA [Concomitant]
  3. ZOCOR [Concomitant]
  4. PINDOLOL [Concomitant]
  5. NORVASC [Concomitant]
  6. GLUCOPHAGE [Concomitant]
  7. GLIBURIDE [Concomitant]
  8. VITAMIN CAP [Concomitant]

REACTIONS (3)
  - COUGH [None]
  - INCREASED UPPER AIRWAY SECRETION [None]
  - RHINORRHOEA [None]
